FAERS Safety Report 6313044-X (Version None)
Quarter: 2009Q3

REPORT INFORMATION
  Report Type: 
  Country: None (occurrence: None)
  Receive Date: 20090818
  Receipt Date: 20090429
  Transmission Date: 20100115
  Serious: No
  Sender: FDA-Public Use
  Company Number: US-BRISTOL-MYERS SQUIBB COMPANY-14607436

PATIENT
  Age: 82 Year
  Sex: Female

DRUGS (2)
  1. GLYBURIDE AND METFORMIN HYDROCHLORIDE [Suspect]
     Indication: DIABETES MELLITUS
     Dosage: 1DF=5MG/500MG I)PO BID;II)EVERY MORNING AND EVERY NIGHT;III) PO BID +3YRS TO 19-FEB-09
     Route: 048
     Dates: end: 20090219
  2. ACTOS [Concomitant]
     Indication: DIABETES MELLITUS

REACTIONS (1)
  - RENAL IMPAIRMENT [None]
